FAERS Safety Report 9063191 (Version 1)
Quarter: 2013Q1

REPORT INFORMATION
  Report Type: Spontaneous
  Country: US (occurrence: US)
  Receive Date: 20130213
  Receipt Date: 20130213
  Transmission Date: 20140127
  Serious: Yes (Death, Hospitalization)
  Sender: FDA-Public Use
  Company Number: US-GLAXOSMITHKLINE-A0826709A

PATIENT
  Age: 50 None
  Sex: Female

DRUGS (11)
  1. AVANDAMET [Suspect]
     Indication: DIABETES MELLITUS
     Route: 048
     Dates: start: 20060928, end: 20080212
  2. AVANDIA [Suspect]
     Indication: DIABETES MELLITUS
     Route: 048
  3. HYDROCODONE [Suspect]
     Indication: PRODUCT USED FOR UNKNOWN INDICATION
     Route: 065
     Dates: end: 20090407
  4. LORAZEPAM [Suspect]
     Indication: PRODUCT USED FOR UNKNOWN INDICATION
     Route: 065
     Dates: end: 20090407
  5. DULOXETINE [Suspect]
     Indication: PRODUCT USED FOR UNKNOWN INDICATION
     Route: 065
     Dates: end: 20090407
  6. ZOLPIDEM [Suspect]
     Indication: PRODUCT USED FOR UNKNOWN INDICATION
     Route: 065
     Dates: end: 20090407
  7. DULOXETINE [Concomitant]
     Indication: PRODUCT USED FOR UNKNOWN INDICATION
     Dates: end: 20090407
  8. EFFEXOR XR [Concomitant]
  9. SYNTHROID [Concomitant]
  10. TRIAMCINOLONE [Concomitant]
  11. VITAMIN B12 [Concomitant]

REACTIONS (2)
  - Cardiac failure congestive [Fatal]
  - Overdose [Fatal]
